FAERS Safety Report 4504603-5 (Version None)
Quarter: 2004Q4

REPORT INFORMATION
  Report Type: 
  Country: None (occurrence: None)
  Receive Date: 20041118
  Receipt Date: 20041110
  Transmission Date: 20050328
  Serious: Yes (Hospitalization)
  Sender: FDA-Public Use
  Company Number: GB-GLAXOSMITHKLINE-B0318364B

PATIENT
  Sex: Male
  Weight: 1.9 kg

DRUGS (3)
  1. SEROXAT [Suspect]
     Dosage: 30MG PER DAY
     Dates: start: 20040116
  2. ERYTHROMYCIN [Concomitant]
     Dates: start: 20031110, end: 20031117
  3. LACTULOSE [Concomitant]
     Dates: start: 20040127

REACTIONS (2)
  - DRUG EXPOSURE DURING PREGNANCY [None]
  - UV LIGHT THERAPY [None]
